FAERS Safety Report 9224343 (Version 1)
Quarter: 2013Q2

REPORT INFORMATION
  Report Type: Spontaneous
  Country: US (occurrence: US)
  Receive Date: 20130411
  Receipt Date: 20130411
  Transmission Date: 20140414
  Serious: Yes (Other)
  Sender: FDA-Public Use
  Company Number: PHEH2013US008029

PATIENT
  Sex: 0

DRUGS (2)
  1. DIOVAN [Suspect]
  2. ZESTRIL [Suspect]
     Dosage: 40MG

REACTIONS (2)
  - Cerebrovascular accident [Unknown]
  - Malaise [Unknown]
